FAERS Safety Report 6879778-3 (Version None)
Quarter: 2010Q3

REPORT INFORMATION
  Report Type: 
  Country: None (occurrence: None)
  Receive Date: 20100728
  Receipt Date: 20100715
  Transmission Date: 20110219
  Serious: Yes (Hospitalization, Other)
  Sender: FDA-Public Use
  Company Number: US-ELI_LILLY_AND_COMPANY-US201006003997

PATIENT
  Sex: Female

DRUGS (24)
  1. FORTEO [Suspect]
     Indication: OSTEOPOROSIS
     Dosage: 20 UG, DAILY (1/D)
  2. LEVOTHYROXINE [Concomitant]
  3. HYDROCORTISONE [Concomitant]
  4. TRIMETRIN [Concomitant]
  5. CARTIA XT [Concomitant]
  6. ASPIRIN [Concomitant]
  7. PRILOSEC [Concomitant]
  8. CALCIUM CITRATE [Concomitant]
  9. VITAMIN D [Concomitant]
  10. MUCINEX [Concomitant]
  11. SPIRIVA [Concomitant]
  12. PULMICORT [Concomitant]
  13. ALBUTEROL SULFATE [Concomitant]
  14. MIRALAX [Concomitant]
  15. CIPRO [Concomitant]
  16. DOXYCYCLINE [Concomitant]
  17. MULTI-VITAMIN [Concomitant]
  18. IRON [Concomitant]
  19. VITAMIN B6 [Concomitant]
  20. ASCORBIC ACID [Concomitant]
  21. XOPENEX [Concomitant]
  22. BENTYL [Concomitant]
  23. QUININE [Concomitant]
  24. NITROSTAT [Concomitant]

REACTIONS (14)
  - ABDOMINAL HERNIA [None]
  - CONSTIPATION [None]
  - DEEP VEIN THROMBOSIS [None]
  - FRACTURE [None]
  - HYPOACUSIS [None]
  - INTESTINAL OBSTRUCTION [None]
  - INTESTINAL RESECTION [None]
  - MEMORY IMPAIRMENT [None]
  - MUSCLE SPASMS [None]
  - OSTEOPOROSIS [None]
  - PNEUMONIA [None]
  - SMALL INTESTINAL OBSTRUCTION [None]
  - SPINAL FRACTURE [None]
  - SURGERY [None]
